FAERS Safety Report 9448834 (Version 1)
Quarter: 2013Q3

REPORT INFORMATION
  Report Type: Spontaneous
  Country: US (occurrence: US)
  Receive Date: 20130808
  Receipt Date: 20130808
  Transmission Date: 20140515
  Serious: Yes (Death)
  Sender: FDA-Public Use
  Company Number: US-AMGEN-USASP2013055234

PATIENT
  Age: 65 Year
  Sex: 0

DRUGS (14)
  1. FILGRASTIM [Suspect]
     Indication: BURKITT^S LYMPHOMA
     Dosage: 5 MUG/KG, 1 IN 1 D (ON DAY 3 UNTILL POST-NADIR ANC MORE THAN OR EQUAL TO 1000/UL)
     Route: 058
  2. FILGRASTIM [Suspect]
     Dosage: 5 MUG/KG, 1 IN 1 D (ON DAY 11 UNTILL POST-NADIR ANC MORE THAN OR EQUAL TO 1000/UL)
     Route: 058
  3. RITUXIMAB [Suspect]
     Indication: BURKITT^S LYMPHOMA
     Dosage: 375 MG/M2, 1 IN 1 D (DAY 1 AND 8)
     Route: 042
  4. RITUXIMAB [Suspect]
     Dosage: 375 UNK, 1 IN 1 WK (4 DOSES WEEKLY)
     Route: 042
  5. CYCLOPHOSPHAMIDE [Suspect]
     Indication: BURKITT^S LYMPHOMA
     Dosage: 1500 MG/M2, 1 IN1 D (DAY 1)
     Route: 042
  6. CYCLOPHOSPHAMIDE [Suspect]
     Dosage: 50 MG/KG, 1 IN1 D (DAY 2 TO 5)
     Route: 042
  7. VINCRISTINE [Suspect]
     Indication: BURKITT^S LYMPHOMA
     Dosage: 1.4 MG/M2, 1 IN 1 D (2 MG CAPSULE)
     Route: 042
  8. METHOTREXATE [Suspect]
     Indication: BURKITT^S LYMPHOMA
     Dosage: 3 MG/M2, UNK
     Route: 042
  9. LEUCOVORIN /00566701/ [Suspect]
     Indication: BURKITT^S LYMPHOMA
     Dosage: 25 MG/M2, UNK
     Route: 042
  10. CYTARABINE [Suspect]
     Indication: BURKITT^S LYMPHOMA
     Dosage: 100 MG, UNK
     Route: 037
  11. PREDNISONE [Suspect]
     Indication: BURKITT^S LYMPHOMA
     Dosage: 100 MG, 1 IN 1 D (DAY 1-5)
     Route: 048
  12. MESNA [Suspect]
     Indication: BURKITT^S LYMPHOMA
     Dosage: 900 MG/M2, 1 IN1 D (DAY 1)
     Route: 042
  13. MESNA [Suspect]
     Dosage: 40 MG/KG, 1 IN 1 D (DAY 2-5)
     Route: 042
  14. HYDROCORTISONE [Suspect]
     Indication: BURKITT^S LYMPHOMA
     Dosage: 50 MG, UNK
     Route: 037

REACTIONS (1)
  - Neutropenic sepsis [Fatal]
